FAERS Safety Report 13386598 (Version 4)
Quarter: 2017Q2

REPORT INFORMATION
  Report Type: Spontaneous
  Country: US (occurrence: US)
  Receive Date: 20170330
  Receipt Date: 20170511
  Transmission Date: 20170830
  Serious: No
  Sender: FDA-Public Use
  Company Number: US-PFIZER INC-2017133919

PATIENT
  Age: 76 Year
  Sex: Female
  Weight: 77 kg

DRUGS (3)
  1. CLINDAMYCIN. [Concomitant]
     Active Substance: CLINDAMYCIN
     Indication: PHARYNGITIS
     Dosage: 150 MG, 4X/DAY
     Route: 048
     Dates: start: 20170323
  2. METFORMIN [Concomitant]
     Active Substance: METFORMIN HYDROCHLORIDE
     Indication: DIABETES MELLITUS
     Dosage: 500 MG, 2X/DAY
     Route: 048
     Dates: start: 2016
  3. METHYLPREDNISOLONE. [Suspect]
     Active Substance: METHYLPREDNISOLONE
     Indication: PHARYNGITIS
     Dosage: 4 MG, ON A REDUCING SCHEDULE
     Route: 048
     Dates: start: 20170323

REACTIONS (7)
  - Blood glucose increased [Unknown]
  - Product physical issue [Unknown]
  - Oral fungal infection [Unknown]
  - Product packaging issue [Unknown]
  - Dysgeusia [Unknown]
  - Poor quality drug administered [Unknown]
  - Oral candidiasis [Unknown]

NARRATIVE: CASE EVENT DATE: 20170323
